FAERS Safety Report 6862414-X (Version None)
Quarter: 2010Q3

REPORT INFORMATION
  Report Type: 
  Country: None (occurrence: None)
  Receive Date: 20100719
  Receipt Date: 20100712
  Transmission Date: 20110219
  Serious: Yes (Death, Hospitalization)
  Sender: FDA-Public Use
  Company Number: 2010SP037462

PATIENT
  Age: 37 Year
  Sex: Female
  Weight: 74 kg

DRUGS (5)
  1. TEMOZOLOMIDE [Suspect]
     Indication: ASTROCYTOMA
     Dosage: QD ; QD
     Dates: start: 20100329, end: 20100510
  2. TEMOZOLOMIDE [Suspect]
     Indication: ASTROCYTOMA
     Dosage: QD ; QD
     Dates: start: 20100610, end: 20100614
  3. LEVETIRACETAM [Suspect]
     Indication: PRODUCT USED FOR UNKNOWN INDICATION
     Dosage: Q12H
  4. OMEPRAZOLE [Concomitant]
  5. GRANISETRON HCL [Concomitant]

REACTIONS (1)
  - HEPATITIS FULMINANT [None]
